FAERS Safety Report 9306488 (Version 1)
Quarter: 2013Q2

REPORT INFORMATION
  Report Type: Spontaneous
  Country: IT (occurrence: IT)
  Receive Date: 20130523
  Receipt Date: 20130523
  Transmission Date: 20140414
  Serious: Yes (Other)
  Sender: FDA-Public Use
  Company Number: IT-BAYER-2013-061845

PATIENT
  Age: 57 Year
  Sex: Male

DRUGS (4)
  1. ACETYLSALICYLIC ACID [Suspect]
     Indication: HYPERPYREXIA
     Dosage: DAILY DOSE 1 G
     Route: 048
     Dates: start: 20130501, end: 20130504
  2. CIPROFLOXACIN [Suspect]
     Dosage: DAILY DOSE 1 G
     Route: 048
     Dates: start: 20130501, end: 20130504
  3. AMBROXOL [Suspect]
     Indication: BRONCHITIS
     Dosage: DAILY DOSE 1 G
     Route: 055
     Dates: start: 20130501, end: 20130504
  4. METOPROLOL [Concomitant]
     Dosage: UNK

REACTIONS (1)
  - Pemphigus [Recovered/Resolved]
